FAERS Safety Report 5933815-9 (Version None)
Quarter: 2008Q4

REPORT INFORMATION
  Report Type: 
  Country: None (occurrence: None)
  Receive Date: 20081024
  Receipt Date: 20081015
  Transmission Date: 20090506
  Serious: Yes (Hospitalization, Other)
  Sender: FDA-Public Use
  Company Number: 2008SP021100

PATIENT
  Age: 47 Year
  Sex: Male

DRUGS (5)
  1. RIBAVIRIN [Suspect]
     Indication: HEPATITIS C
     Dosage: PO
     Route: 048
     Dates: start: 20070101, end: 20070101
  2. PEGAYSYS [Suspect]
     Indication: HEPATITIS C
     Dates: start: 20070101, end: 20070101
  3. LEXAPRO [Suspect]
  4. HYDROCHLOROTHIAZIDE [Concomitant]
  5. LASIX [Concomitant]

REACTIONS (13)
  - DISEASE PROGRESSION [None]
  - FEELING HOT [None]
  - HAEMATEMESIS [None]
  - IMPAIRED HEALING [None]
  - INSOMNIA [None]
  - LIVER DISORDER [None]
  - MORBID THOUGHTS [None]
  - PAIN [None]
  - PITTING OEDEMA [None]
  - PLATELET COUNT DECREASED [None]
  - PRURITUS [None]
  - SKIN DISORDER [None]
  - ULCER [None]
